FAERS Safety Report 5518293-6 (Version None)
Quarter: 2007Q4

REPORT INFORMATION
  Report Type: 
  Country: None (occurrence: None)
  Receive Date: 20071113
  Receipt Date: 20071113
  Transmission Date: 20080405
  Serious: Yes (Death)
  Sender: FDA-Public Use
  Company Number: None

PATIENT
  Sex: Female
  Weight: 120.2032 kg

DRUGS (2)
  1. TAXOTERE [Suspect]
     Dosage: 66MG DAY 1, DAY 8 IV
     Route: 042
  2. VELCADE [Suspect]
     Dosage: 2.9MG DAY 1, DAY 8 IV
     Route: 042

REACTIONS (1)
  - UNRESPONSIVE TO STIMULI [None]
